FAERS Safety Report 9381665 (Version 2)
Quarter: 2014Q2

REPORT INFORMATION
  Report Type: Report from Study
  Country: US (occurrence: US)
  Receive Date: 20130703
  Receipt Date: 20140408
  Transmission Date: 20141212
  Serious: Yes (Hospitalization)
  Sender: FDA-Public Use
  Company Number: US-PFIZER INC-2013188967

PATIENT
  Age: 71 Year
  Sex: Male
  Weight: 41.4 kg

DRUGS (1)
  1. CRIZOTINIB [Suspect]
     Indication: NON-SMALL CELL LUNG CANCER
     Dosage: 250 MG, ONCE DAILY
     Route: 048
     Dates: start: 20110915

REACTIONS (1)
  - Urinary tract infection [Recovered/Resolved]
